FAERS Safety Report 8546464-3 (Version None)
Quarter: 2012Q3

REPORT INFORMATION
  Report Type: 
  Country: None (occurrence: None)
  Receive Date: 20120727
  Receipt Date: 20120111
  Transmission Date: 20120928
  Serious: No
  Sender: FDA-Public Use
  Company Number: US-ASTRAZENECA-2012SE02240

PATIENT
  Age: 56 Year
  Sex: Male
  Weight: 72.6 kg

DRUGS (11)
  1. SEROQUEL [Suspect]
     Indication: SOCIAL PHOBIA
     Route: 048
     Dates: start: 19970101, end: 20080101
  2. ALPRAZOLAM [Concomitant]
     Indication: SOCIAL PHOBIA
     Route: 048
  3. SEROQUEL [Suspect]
     Indication: ANXIETY
     Route: 048
     Dates: start: 19970101, end: 20080101
  4. FLUORESCEIN [Concomitant]
     Indication: ANXIETY
     Route: 048
  5. SEROQUEL [Suspect]
     Route: 048
     Dates: start: 20080101
  6. ALPRAZOLAM [Concomitant]
     Indication: ANXIETY
     Route: 048
  7. SEROQUEL [Suspect]
     Route: 048
     Dates: start: 20080101
  8. RANITIDINE [Concomitant]
     Indication: ULCER
     Route: 048
  9. SEROQUEL [Suspect]
     Indication: TACHYPHRENIA
     Route: 048
     Dates: start: 19970101, end: 20080101
  10. SEROQUEL [Suspect]
     Route: 048
     Dates: start: 20080101
  11. FLUORESCEIN [Concomitant]
     Indication: SOCIAL PHOBIA
     Route: 048

REACTIONS (9)
  - DIZZINESS [None]
  - FEELING ABNORMAL [None]
  - DRUG DOSE OMISSION [None]
  - OFF LABEL USE [None]
  - HYPOPHAGIA [None]
  - STRESS [None]
  - EMOTIONAL DISORDER [None]
  - WEIGHT INCREASED [None]
  - WRONG TECHNIQUE IN DRUG USAGE PROCESS [None]
